FAERS Safety Report 6241081-2 (Version None)
Quarter: 2009Q2

REPORT INFORMATION
  Report Type: 
  Country: None (occurrence: None)
  Receive Date: 20090619
  Receipt Date: 20090619
  Transmission Date: 20091009
  Serious: Yes (Disabling)
  Sender: FDA-Public Use
  Company Number: None

PATIENT
  Age: 60 Year
  Sex: Male
  Weight: 86.1834 kg

DRUGS (5)
  1. AVELOX [Suspect]
     Indication: SINUSITIS
     Dosage: 400 MG ONCE/DAY PO
     Route: 048
     Dates: start: 20090331, end: 20090406
  2. LIPITOR [Concomitant]
  3. LOTREL [Concomitant]
  4. ZETIA [Concomitant]
  5. DOXEPIN HCL [Concomitant]

REACTIONS (2)
  - MUSCULOSKELETAL PAIN [None]
  - TENDON RUPTURE [None]
